FAERS Safety Report 5486347-9 (Version None)
Quarter: 2007Q4

REPORT INFORMATION
  Report Type: 
  Country: None (occurrence: None)
  Receive Date: 20071016
  Receipt Date: 20071002
  Transmission Date: 20080405
  Serious: Yes (Other)
  Sender: FDA-Public Use
  Company Number: US-ELI_LILLY_AND_COMPANY-US200710000426

PATIENT
  Age: 5 Year
  Sex: Male
  Weight: 51.7 kg

DRUGS (2)
  1. STRATTERA [Suspect]
     Indication: ATTENTION DEFICIT/HYPERACTIVITY DISORDER
     Dosage: 10 MG, UNK
     Dates: start: 20070901
  2. STRATTERA [Suspect]
     Dosage: 18 MG, UNK
     Dates: start: 20070901

REACTIONS (5)
  - AGGRESSION [None]
  - ANXIETY [None]
  - DRUG ADMINISTRATION ERROR [None]
  - DRUG INEFFECTIVE [None]
  - HOMICIDAL IDEATION [None]
